FAERS Safety Report 10881212 (Version 2)
Quarter: 2015Q2

REPORT INFORMATION
  Report Type: Spontaneous
  Country: US (occurrence: US)
  Receive Date: 20150303
  Receipt Date: 20150508
  Transmission Date: 20150821
  Serious: No
  Sender: FDA-Public Use
  Company Number: US-PFIZER INC-2015072452

PATIENT
  Age: 80 Year
  Sex: Female

DRUGS (3)
  1. PREDNISONE. [Suspect]
     Active Substance: PREDNISONE
     Indication: RHEUMATOID ARTHRITIS
     Dosage: 05 MG, UNK
     Dates: start: 200903
  2. METHOTREXATE SODIUM. [Suspect]
     Active Substance: METHOTREXATE SODIUM
     Indication: RHEUMATOID ARTHRITIS
     Dosage: UNK
     Dates: start: 200903, end: 201401
  3. IBUPROFEN. [Suspect]
     Active Substance: IBUPROFEN
     Indication: PAIN
     Dosage: 400 MG, 1X/DAY, EVERY 24 HRS
     Dates: start: 2012, end: 201409

REACTIONS (11)
  - Pain [Unknown]
  - Mass [Recovered/Resolved]
  - Pain in extremity [Unknown]
  - Back pain [Unknown]
  - Groin pain [Unknown]
  - Arthropathy [Not Recovered/Not Resolved]
  - Condition aggravated [Not Recovered/Not Resolved]
  - Arthralgia [Unknown]
  - Colitis [Unknown]
  - Back disorder [Unknown]
  - Swelling [Unknown]

NARRATIVE: CASE EVENT DATE: 2013
